FAERS Safety Report 16850595 (Version 1)
Quarter: 2019Q3

REPORT INFORMATION
  Report Type: Spontaneous
  Country: US (occurrence: US)
  Receive Date: 20190925
  Receipt Date: 20190925
  Transmission Date: 20191005
  Serious: No
  Sender: FDA-Public Use
  Company Number: US-THERAPEUTICSMD-2019TMD02210

PATIENT
  Age: 50 Year
  Sex: Female

DRUGS (1)
  1. IMVEXXY [Suspect]
     Active Substance: ESTRADIOL
     Indication: HOT FLUSH
     Dosage: UNK, 2X/WEEK ON MONDAY AND THURSDAY

REACTIONS (4)
  - Product residue present [Unknown]
  - Drug ineffective for unapproved indication [Not Recovered/Not Resolved]
  - Malabsorption from administration site [Not Recovered/Not Resolved]
  - Hot flush [Not Recovered/Not Resolved]

NARRATIVE: CASE EVENT DATE: 201907
